FAERS Safety Report 13329196 (Version 1)
Quarter: 2017Q1

REPORT INFORMATION
  Report Type: Spontaneous
  Country: US (occurrence: US)
  Receive Date: 20170313
  Receipt Date: 20170313
  Transmission Date: 20170428
  Serious: No
  Sender: FDA-Public Use
  Company Number: None

PATIENT
  Age: 68 Year
  Sex: Female
  Weight: 61.29 kg

DRUGS (8)
  1. SELENIUM [Concomitant]
     Active Substance: SELENIUM
  2. BERRBERIZE [Concomitant]
  3. ESTRIOL CREAM [Concomitant]
  4. PROGESTERONE. [Concomitant]
     Active Substance: PROGESTERONE
  5. NATURE-THROID [Concomitant]
     Active Substance: THYROID, PORCINE
  6. CINNAMIN [Concomitant]
  7. GLIPIZIDE 10 MG [Suspect]
     Active Substance: GLIPIZIDE
     Indication: DIABETES MELLITUS
     Dosage: ?          QUANTITY1 BY MOUTH 2 X DAY?
     Route: 048
     Dates: start: 20170207, end: 20170209
  8. VITAMIN D [Concomitant]
     Active Substance: CHOLECALCIFEROL

REACTIONS (1)
  - Muscle spasms [None]

NARRATIVE: CASE EVENT DATE: 20170208
